FAERS Safety Report 20956044 (Version 2)
Quarter: 2022Q2

REPORT INFORMATION
  Report Type: Spontaneous
  Country: US (occurrence: None)
  Receive Date: 20220614
  Receipt Date: 20220615
  Transmission Date: 20220720
  Serious: No
  Sender: FDA-Public Use
  Company Number: US-MDD US Operations-MDD202202-000205

PATIENT
  Age: 74 Year
  Sex: Male

DRUGS (13)
  1. APOKYN [Suspect]
     Active Substance: APOMORPHINE HYDROCHLORIDE
     Indication: Product used for unknown indication
     Route: 058
  2. CARBIDOPA\LEVODOPA [Concomitant]
     Active Substance: CARBIDOPA\LEVODOPA
     Dosage: 250MG
  3. COMTAN [Concomitant]
     Active Substance: ENTACAPONE
     Dosage: 200 MG
  4. AMLODIPINE [Concomitant]
     Active Substance: AMLODIPINE BESYLATE
     Dosage: 3 MG
  5. TAMSULOSIN [Concomitant]
     Active Substance: TAMSULOSIN
     Dosage: 4 MG
  6. OMEPRAZOLE [Concomitant]
     Active Substance: OMEPRAZOLE
     Dosage: NOT PROVIDED
  7. TRAZODONE [Concomitant]
     Active Substance: TRAZODONE HYDROCHLORIDE
     Dosage: 150 MG
  8. FINASTERIDE [Concomitant]
     Active Substance: FINASTERIDE
     Dosage: 5MG
  9. ATORVASTATIN [Concomitant]
     Active Substance: ATORVASTATIN
     Dosage: 5 MG
  10. AMANTADINE [Concomitant]
     Active Substance: AMANTADINE
     Dosage: 100 MG
  11. TROSPIUM [Concomitant]
     Active Substance: TROSPIUM
     Dosage: 20 MG
  12. DOCUSATE [Concomitant]
     Active Substance: DOCUSATE
     Dosage: 100MG
  13. MELATONIN [Concomitant]
     Active Substance: MELATONIN
     Dosage: 10 MG

REACTIONS (3)
  - Injection site bruising [Not Recovered/Not Resolved]
  - Injection site nodule [Not Recovered/Not Resolved]
  - Hypotension [Recovered/Resolved]

NARRATIVE: CASE EVENT DATE: 20220101
